FAERS Safety Report 18203150 (Version 1)
Quarter: 2020Q3

REPORT INFORMATION
  Report Type: Spontaneous
  Country: US (occurrence: US)
  Receive Date: 20200827
  Receipt Date: 20200827
  Transmission Date: 20201103
  Serious: Yes (Hospitalization)
  Sender: FDA-Public Use
  Company Number: US-MYLANLABS-2020M1074279

PATIENT
  Age: 63 Year
  Sex: Female

DRUGS (1)
  1. HEPARIN [Suspect]
     Active Substance: HEPARIN SODIUM
     Indication: THROMBOSIS PROPHYLAXIS
     Dosage: UNK
     Route: 058

REACTIONS (6)
  - Heparin-induced thrombocytopenia [Unknown]
  - Adrenal haemorrhage [Unknown]
  - Splenic vein thrombosis [Unknown]
  - Ileus paralytic [Unknown]
  - Portal vein thrombosis [Unknown]
  - Adrenal insufficiency [Unknown]
